FAERS Safety Report 8536678-0 (Version None)
Quarter: 2012Q2

REPORT INFORMATION
  Report Type: 
  Country: None (occurrence: None)
  Receive Date: 20120412
  Receipt Date: 20100204
  Transmission Date: 20120825
  Serious: Yes (Other)
  Sender: FDA-Public Use
  Company Number: PHEH2010US01997

PATIENT
  Age: 62 Week
  Sex: Female
  Weight: 83 kg

DRUGS (2)
  1. XELODA [Suspect]
     Indication: BREAST CANCER METASTATIC
     Dosage: 1000 MG, BID, ORAL
     Route: 048
     Dates: start: 20090509, end: 20100105
  2. AREDIA [Suspect]

REACTIONS (1)
  - NEOPLASM MALIGNANT [None]
